FAERS Safety Report 4660849-7 (Version None)
Quarter: 2005Q2

REPORT INFORMATION
  Report Type: 
  Country: None (occurrence: None)
  Receive Date: 20050422
  Receipt Date: 20041130
  Transmission Date: 20051028
  Serious: Yes (Hospitalization)
  Sender: FDA-Public Use
  Company Number: APP200400873

PATIENT

DRUGS (1)
  1. HEPARIN SODIUM INJECTION [Suspect]
     Indication: DIALYSIS
     Dosage: (AS REQUIRED),INJECTION
     Dates: start: 20041117, end: 20041117

REACTIONS (1)
  - CATHETER SITE HAEMORRHAGE [None]
